FAERS Safety Report 9554704 (Version 2)
Quarter: 2013Q3

REPORT INFORMATION
  Report Type: Report from Study
  Country: PH (occurrence: PH)
  Receive Date: 20130926
  Receipt Date: 20130926
  Transmission Date: 20140515
  Serious: Yes (Death, Hospitalization)
  Sender: FDA-Public Use
  Company Number: PH-BAXTER-2013BAX036242

PATIENT
  Age: 29 Year
  Sex: Female

DRUGS (4)
  1. DIANEAL PD2 WITH 1.5% DEXTROSE [Suspect]
     Indication: PERITONEAL DIALYSIS
     Route: 033
     Dates: start: 201010
  2. FESO4 [Concomitant]
     Indication: PRODUCT USED FOR UNKNOWN INDICATION
     Route: 065
  3. AMLODIPINE [Concomitant]
     Indication: PRODUCT USED FOR UNKNOWN INDICATION
     Route: 065
  4. CALCIUM CARBONATE [Concomitant]
     Indication: PRODUCT USED FOR UNKNOWN INDICATION
     Route: 065

REACTIONS (5)
  - Pulmonary congestion [Fatal]
  - Peritonitis [Unknown]
  - Peritoneal dialysis complication [Unknown]
  - Diarrhoea [Unknown]
  - Oedema [Unknown]
